FAERS Safety Report 11278953 (Version 1)
Quarter: 2015Q3

REPORT INFORMATION
  Report Type: Spontaneous
  Country: GB (occurrence: None)
  Receive Date: 20150715
  Receipt Date: 20150715
  Transmission Date: 20151125
  Serious: Yes (Hospitalization, Other)
  Sender: FDA-Public Use
  Company Number: 2015HINLIT0564

PATIENT
  Age: 35 Year
  Sex: Male

DRUGS (3)
  1. INDOMETHACIN (INDOMETHACIN) UNKNOWN [Suspect]
     Active Substance: INDOMETHACIN
     Indication: PROTEINURIA
  2. INDOMETHACIN (INDOMETHACIN) UNKNOWN [Suspect]
     Active Substance: INDOMETHACIN
     Indication: OEDEMA PERIPHERAL
  3. GASTRIC PROTECTANT (GASTRIC PROTECTANT) [Concomitant]

REACTIONS (6)
  - Nephrotic syndrome [None]
  - Abdominal pain [None]
  - Crohn^s disease [None]
  - Abdominal rigidity [None]
  - Off label use [None]
  - Pyrexia [None]
